FAERS Safety Report 14124662 (Version 1)
Quarter: 2017Q4

REPORT INFORMATION
  Report Type: Spontaneous
  Country: US (occurrence: US)
  Receive Date: 20171025
  Receipt Date: 20171025
  Transmission Date: 20180321
  Serious: Yes (Hospitalization, Other)
  Sender: FDA-Public Use
  Company Number: US-B.I. PHARMACEUTICALS,INC./RIDGEFIELD-2017-BI-056579

PATIENT
  Age: 59 Year
  Sex: Female

DRUGS (1)
  1. SPIRIVA [Suspect]
     Active Substance: TIOTROPIUM BROMIDE MONOHYDRATE
     Indication: CHRONIC OBSTRUCTIVE PULMONARY DISEASE
     Route: 055
     Dates: start: 2007

REACTIONS (4)
  - Eyelid ptosis [Recovered/Resolved]
  - Dry eye [Not Recovered/Not Resolved]
  - Intracranial aneurysm [Recovered/Resolved with Sequelae]
  - Lower respiratory tract infection bacterial [Recovered/Resolved]

NARRATIVE: CASE EVENT DATE: 201212
